FAERS Safety Report 4315835-3 (Version None)
Quarter: 2004Q1

REPORT INFORMATION
  Report Type: 
  Country: None (occurrence: None)
  Receive Date: 20040310
  Receipt Date: 20040224
  Transmission Date: 20041129
  Serious: Yes (Other)
  Sender: FDA-Public Use
  Company Number: S04-IRL-00877-01

PATIENT
  Age: 51 Year
  Sex: Female

DRUGS (1)
  1. CIPRAMIL (CITALOPRAM HYDROBROMIDE) [Suspect]
     Indication: DEPRESSION
     Dosage: 10 MG QD PO  ; 20 MG ONCE PO
     Route: 048
     Dates: start: 20031219, end: 20031222

REACTIONS (4)
  - FACE OEDEMA [None]
  - FLUSHING [None]
  - HEADACHE [None]
  - THROAT TIGHTNESS [None]
